FAERS Safety Report 23480192 (Version 1)
Quarter: 2024Q1

REPORT INFORMATION
  Report Type: Spontaneous
  Country: US (occurrence: US)
  Receive Date: 20240205
  Receipt Date: 20240205
  Transmission Date: 20240409
  Serious: Yes (Hospitalization)
  Sender: FDA-Public Use
  Company Number: US-BRISTOL-MYERS SQUIBB COMPANY-2024-018025

PATIENT
  Age: 84 Year
  Sex: Male
  Weight: 58.96 kg

DRUGS (1)
  1. REVLIMID [Suspect]
     Active Substance: LENALIDOMIDE
     Indication: Chronic lymphocytic leukaemia
     Dosage: FREQUENCY: DAILY
     Route: 048
     Dates: start: 20220401

REACTIONS (2)
  - Hospitalisation [Recovering/Resolving]
  - Off label use [Unknown]
